FAERS Safety Report 5794162-1 (Version None)
Quarter: 2008Q2

REPORT INFORMATION
  Report Type: 
  Country: None (occurrence: None)
  Receive Date: 20080627
  Receipt Date: 20080618
  Transmission Date: 20081010
  Serious: Yes (Death)
  Sender: FDA-Public Use
  Company Number: JP-MERCK-0805USA00296

PATIENT
  Age: 70 Year
  Sex: Male

DRUGS (6)
  1. PEPCID [Suspect]
     Indication: DUODENAL ULCER PERFORATION
     Route: 042
     Dates: start: 20080128, end: 20080206
  2. TIENAM [Concomitant]
     Route: 065
  3. CLINDAMYCIN HCL [Suspect]
     Indication: STAPHYLOCOCCAL SEPSIS
     Route: 042
     Dates: start: 20080204, end: 20080206
  4. FESIN [Concomitant]
     Indication: ANAEMIA
     Route: 042
     Dates: start: 20080128, end: 20080205
  5. MEROPEN [Suspect]
     Indication: STAPHYLOCOCCAL SEPSIS
     Route: 042
     Dates: start: 20080204, end: 20080206
  6. METILON [Suspect]
     Indication: STAPHYLOCOCCAL SEPSIS
     Route: 030
     Dates: start: 20080204, end: 20080205

REACTIONS (1)
  - GASTRIC MUCOSAL LESION [None]
